FAERS Safety Report 14891645 (Version 1)
Quarter: 2018Q2

REPORT INFORMATION
  Report Type: Spontaneous
  Country: US (occurrence: US)
  Receive Date: 20180514
  Receipt Date: 20180514
  Transmission Date: 20180711
  Serious: Yes (Hospitalization)
  Sender: FDA-Public Use
  Company Number: US-FOUNDATIONCONSUMERHC-2018-US-007516

PATIENT
  Age: 48 Year
  Sex: Male
  Weight: 63.05 kg

DRUGS (2)
  1. ST. JOSEPH LOW DOSE ASPIRIN [Suspect]
     Active Substance: ASPIRIN
     Indication: ATRIAL FIBRILLATION
     Dosage: 81 MG/QD
     Route: 048
     Dates: start: 20180421
  2. PROBIOTIC (UNSPECIFIED) [Concomitant]

REACTIONS (3)
  - Feeling abnormal [None]
  - Sensory disturbance [Not Recovered/Not Resolved]
  - Swelling face [None]

NARRATIVE: CASE EVENT DATE: 20180425
